FAERS Safety Report 7919806-7 (Version None)
Quarter: 2011Q4

REPORT INFORMATION
  Report Type: 
  Country: None (occurrence: None)
  Receive Date: 20111117
  Receipt Date: 20111117
  Transmission Date: 20120403
  Serious: Yes (Other)
  Sender: FDA-Public Use
  Company Number: None

PATIENT
  Age: 54 Year
  Sex: Female
  Weight: 55.338 kg

DRUGS (3)
  1. GABAPENTIN [Concomitant]
  2. CLONAZEPAM [Concomitant]
     Dosage: 1 MG
     Route: 048
     Dates: start: 20111016, end: 20111113
  3. CLONAZEPAM [Suspect]
     Indication: TORTICOLLIS
     Dosage: 1 MG
     Route: 048
     Dates: start: 20110916, end: 20111018

REACTIONS (13)
  - NECK PAIN [None]
  - FEELING ABNORMAL [None]
  - SCREAMING [None]
  - PAINFUL RESPIRATION [None]
  - MYALGIA [None]
  - NAUSEA [None]
  - IMPAIRED DRIVING ABILITY [None]
  - ACTIVITIES OF DAILY LIVING IMPAIRED [None]
  - HEADACHE [None]
  - MUSCULOSKELETAL PAIN [None]
  - PRODUCT SUBSTITUTION ISSUE [None]
  - MIDDLE INSOMNIA [None]
  - SLEEP TERROR [None]
